FAERS Safety Report 11201776 (Version 1)
Quarter: 2015Q2

REPORT INFORMATION
  Report Type: Spontaneous
  Country: US (occurrence: None)
  Receive Date: 20150617
  Receipt Date: 20150617
  Transmission Date: 20150821
  Serious: Yes (Other)
  Sender: FDA-Public Use
  Company Number: SP09509

PATIENT
  Age: 50 Year
  Sex: Female
  Weight: 79.83 kg

DRUGS (2)
  1. XIFAXAN [Suspect]
     Active Substance: RIFAXIMIN
     Indication: HEPATIC ENCEPHALOPATHY
     Dosage: 1100 MG (550 MG, 2 IN 1 D)
     Dates: start: 201502
  2. LACTULOSE. [Concomitant]
     Active Substance: LACTULOSE

REACTIONS (1)
  - Enterococcal infection [None]

NARRATIVE: CASE EVENT DATE: 201505
